FAERS Safety Report 22121662 (Version 2)
Quarter: 2023Q2

REPORT INFORMATION
  Report Type: Report from Study
  Country: ES (occurrence: ES)
  Receive Date: 20230321
  Receipt Date: 20230601
  Transmission Date: 20230722
  Serious: Yes (Hospitalization)
  Sender: FDA-Public Use
  Company Number: ES-JNJFOC-20230259317

PATIENT
  Age: 71 Year
  Sex: Male
  Weight: 64.5 kg

DRUGS (14)
  1. PREDNISONE [Suspect]
     Active Substance: PREDNISONE
     Indication: Prostate cancer metastatic
     Dosage: LAST DOSE BEFORE THE VENT WAS ON 19-OCT-2021
     Route: 048
     Dates: start: 20211111
  2. ABIRATERONE [Suspect]
     Active Substance: ABIRATERONE
     Indication: Prostate cancer metastatic
     Dosage: LAST DOSE BEFORE THE VENT WAS ON 19-OCT-2021
     Route: 048
     Dates: end: 20211110
  3. ABIRATERONE [Suspect]
     Active Substance: ABIRATERONE
     Dosage: LAST DOSE BEFORE THE VENT WAS ON 19-OCT-2021
     Route: 048
     Dates: start: 20211006, end: 20211020
  4. ABEMACICLIB [Suspect]
     Active Substance: ABEMACICLIB
     Indication: Prostate cancer metastatic
     Dosage: LAST DOSE BEFORE THE VENT WAS ON 19-OCT-2021
     Route: 048
     Dates: start: 20211006, end: 20211020
  5. ABEMACICLIB [Suspect]
     Active Substance: ABEMACICLIB
     Dosage: LAST DOSE BEFORE THE VENT WAS ON 19-OCT-2021
     Route: 048
     Dates: end: 20211110
  6. LEUPROLIDE ACETATE [Concomitant]
     Active Substance: LEUPROLIDE ACETATE
     Indication: Prostate cancer metastatic
     Dosage: UNK
     Route: 065
     Dates: start: 20210708
  7. METFORMIN [Concomitant]
     Active Substance: METFORMIN HYDROCHLORIDE
     Indication: Type 2 diabetes mellitus
     Dosage: UNK
     Route: 065
     Dates: start: 2012
  8. JARDIANCE [Concomitant]
     Active Substance: EMPAGLIFLOZIN
     Indication: Type 2 diabetes mellitus
     Dosage: UNK
     Route: 065
     Dates: start: 2012
  9. DESFESOTERODINE SUCCINATE [Concomitant]
     Active Substance: DESFESOTERODINE SUCCINATE
     Indication: Hypertonic bladder
     Dosage: UNK
     Route: 065
     Dates: start: 2012
  10. ENALAPRIL [Concomitant]
     Active Substance: ENALAPRIL
     Indication: Hypertension
     Dosage: UNK
     Route: 065
     Dates: start: 2005
  11. INSULIN NOS [Concomitant]
     Active Substance: INSULIN NOS
     Indication: Hyperglycaemia
     Dosage: UNK
     Route: 065
  12. TRIPTORELIN [Concomitant]
     Active Substance: TRIPTORELIN
     Indication: Prostate cancer metastatic
     Dosage: UNK
     Route: 065
     Dates: start: 20170712
  13. CALCIUM CARBONATE\CHOLECALCIFEROL [Concomitant]
     Active Substance: CALCIUM CARBONATE\CHOLECALCIFEROL
     Indication: Prophylaxis
     Dosage: UNK
     Route: 065
     Dates: start: 2017
  14. SIMVASTATIN [Concomitant]
     Active Substance: SIMVASTATIN
     Indication: Dyslipidaemia
     Dosage: UNK
     Route: 065
     Dates: start: 2012

REACTIONS (2)
  - Hepatic failure [Recovered/Resolved]
  - Hypertransaminasaemia [Recovered/Resolved]

NARRATIVE: CASE EVENT DATE: 20211110
